FAERS Safety Report 8363235-1 (Version None)
Quarter: 2012Q2

REPORT INFORMATION
  Report Type: 
  Country: None (occurrence: None)
  Receive Date: 20120516
  Receipt Date: 20111128
  Transmission Date: 20120825
  Serious: No
  Sender: FDA-Public Use
  Company Number: US-ALEXION-A201101801

PATIENT
  Sex: Female

DRUGS (15)
  1. SOLIRIS [Suspect]
     Dosage: 1200 MG, Q12DAYS
     Route: 042
     Dates: start: 20111201, end: 20120101
  2. ARANESP [Concomitant]
     Dosage: 500 MCG/ML, Q2WK
  3. EXJADE [Concomitant]
     Dosage: 750 MG, QD
     Route: 048
  4. PRILOSEC [Concomitant]
     Dosage: 20 MG, BID
     Route: 048
  5. CYANOCOBALAMIN [Concomitant]
     Dosage: 1000 MCG, QD
  6. CITRACAL PLUS [Concomitant]
     Dosage: 1200 MG, QD
     Route: 048
  7. SOLIRIS [Suspect]
     Indication: PAROXYSMAL NOCTURNAL HAEMOGLOBINURIA
     Dosage: 900 MG, SINGLE
     Route: 042
     Dates: start: 20111205, end: 20111201
  8. CRANBERRY [Concomitant]
     Dosage: 500 MG, TID
  9. FOLIC ACID [Concomitant]
     Dosage: 2 TABS, QD
  10. URSODIOL [Concomitant]
     Dosage: 500 MG, BID
     Route: 048
  11. VITAMIN D [Concomitant]
     Dosage: 125 MG, TID
  12. PREDNISONE [Concomitant]
     Dosage: 10 MG, QOD
     Route: 048
  13. SOLIRIS [Suspect]
     Dosage: 1200 MG, Q2W
     Route: 042
     Dates: start: 20120202
  14. CALCIUM [Concomitant]
     Dosage: 500 MG, TID
  15. MAGNESIUM GLUCONATE [Concomitant]
     Dosage: 500 MG, QD

REACTIONS (3)
  - CATARACT SUBCAPSULAR [None]
  - CHROMATURIA [None]
  - HAEMOLYSIS [None]
